FAERS Safety Report 17290528 (Version 2)
Quarter: 2020Q1

REPORT INFORMATION
  Report Type: Report from Study
  Country: None (occurrence: DE)
  Receive Date: 20200121
  Receipt Date: 20200121
  Transmission Date: 20200409
  Serious: No
  Sender: FDA-Public Use
  Company Number: DE-ABBVIE-20K-062-3235866-00

PATIENT
  Sex: Male

DRUGS (4)
  1. OMEPRAZOL [Concomitant]
     Active Substance: OMEPRAZOLE
     Indication: COLITIS ULCERATIVE
     Dates: start: 2016
  2. AZATHIOPRINE. [Concomitant]
     Active Substance: AZATHIOPRINE
     Indication: COLITIS ULCERATIVE
     Dates: start: 2016
  3. CORTISON [Suspect]
     Active Substance: CORTISONE ACETATE
     Indication: COLITIS ULCERATIVE
     Route: 065
     Dates: start: 2016
  4. HUMIRA [Suspect]
     Active Substance: ADALIMUMAB
     Indication: COLITIS ULCERATIVE
     Route: 058
     Dates: start: 20190311

REACTIONS (1)
  - Mental impairment [Not Recovered/Not Resolved]
